FAERS Safety Report 9780127 (Version 1)
Quarter: 2013Q4

REPORT INFORMATION
  Report Type: Spontaneous
  Country: JP (occurrence: JP)
  Receive Date: 20131223
  Receipt Date: 20131223
  Transmission Date: 20140711
  Serious: Yes (Other)
  Sender: FDA-Public Use
  Company Number: JP-ABBVIE-13P-087-1182776-00

PATIENT
  Age: 21 Year
  Sex: Female

DRUGS (20)
  1. DEPAKENE [Suspect]
     Indication: LENNOX-GASTAUT SYNDROME
     Route: 048
  2. MYSTAN [Suspect]
     Indication: LENNOX-GASTAUT SYNDROME
     Route: 048
     Dates: end: 20130724
  3. MYSTAN [Suspect]
     Route: 048
     Dates: start: 20130725, end: 20130807
  4. KEPPRA [Suspect]
     Indication: LENNOX-GASTAUT SYNDROME
     Route: 048
  5. LAMICTAL [Suspect]
     Indication: LENNOX-GASTAUT SYNDROME
     Route: 048
  6. RUFINAMIDE [Suspect]
     Indication: LENNOX-GASTAUT SYNDROME
     Route: 048
     Dates: start: 20130711, end: 20130716
  7. RUFINAMIDE [Suspect]
     Route: 048
     Dates: start: 20130717, end: 20130724
  8. RUFINAMIDE [Suspect]
     Route: 048
     Dates: start: 20130725, end: 20130730
  9. RUFINAMIDE [Suspect]
     Route: 048
     Dates: start: 20130731, end: 20130801
  10. RUFINAMIDE [Suspect]
     Route: 048
     Dates: start: 20130802, end: 20130803
  11. RUFINAMIDE [Suspect]
     Route: 048
     Dates: start: 20130804, end: 20130805
  12. RUFINAMIDE [Suspect]
     Route: 048
     Dates: start: 20130806, end: 20130807
  13. RUFINAMIDE [Suspect]
     Route: 048
     Dates: start: 20130808, end: 20130809
  14. EXCEGRAN [Suspect]
     Indication: LENNOX-GASTAUT SYNDROME
     Route: 048
     Dates: start: 20130711, end: 20130716
  15. EXCEGRAN [Suspect]
     Route: 048
     Dates: start: 20130717
  16. ESCRE [Concomitant]
     Indication: PRODUCT USED FOR UNKNOWN INDICATION
  17. FERROMIA [Concomitant]
     Indication: PRODUCT USED FOR UNKNOWN INDICATION
  18. BIOFERMIN [Concomitant]
     Indication: PRODUCT USED FOR UNKNOWN INDICATION
     Dates: end: 20130821
  19. MAGNESIUM OXIDE [Concomitant]
     Indication: PRODUCT USED FOR UNKNOWN INDICATION
  20. DIAPP [Concomitant]
     Indication: PRODUCT USED FOR UNKNOWN INDICATION

REACTIONS (1)
  - Status epilepticus [Recovered/Resolved]
